FAERS Safety Report 7647223-6 (Version None)
Quarter: 2011Q3

REPORT INFORMATION
  Report Type: 
  Country: None (occurrence: None)
  Receive Date: 20110801
  Receipt Date: 20110719
  Transmission Date: 20111222
  Serious: Yes (Other)
  Sender: FDA-Public Use
  Company Number: US-ROCHE-757310

PATIENT
  Sex: Female
  Weight: 74.8 kg

DRUGS (2)
  1. ACCUTANE [Suspect]
     Indication: ACNE
     Route: 048
     Dates: start: 20000101, end: 20020101
  2. ACCUTANE [Suspect]
     Route: 048
     Dates: start: 20030217

REACTIONS (12)
  - RECTAL HAEMORRHAGE [None]
  - COLITIS ULCERATIVE [None]
  - ABDOMINAL PAIN [None]
  - PURPURA [None]
  - IRRITABLE BOWEL SYNDROME [None]
  - ANAL FISSURE [None]
  - EPISTAXIS [None]
  - COLITIS [None]
  - INFLAMMATORY BOWEL DISEASE [None]
  - DRY EYE [None]
  - LIP DRY [None]
  - DEPRESSION [None]
